FAERS Safety Report 7050237-0 (Version None)
Quarter: 2010Q4

REPORT INFORMATION
  Report Type: 
  Country: None (occurrence: None)
  Receive Date: 20101018
  Receipt Date: 20101014
  Transmission Date: 20110411
  Serious: Yes (Death, Hospitalization)
  Sender: FDA-Public Use
  Company Number: AU-ASTRAZENECA-2010SE45431

PATIENT
  Age: 376 Month
  Sex: Male

DRUGS (5)
  1. SEROQUEL [Suspect]
     Route: 048
     Dates: start: 20060101
  2. SEROQUEL [Suspect]
     Route: 048
     Dates: start: 20071120, end: 20071129
  3. SEROQUEL [Suspect]
     Dosage: THE PATIENT TOOK AT LEAST 100-200 MG TABLETS, EQUIVALENT OF 20 G OF SEROQUEL
     Route: 048
     Dates: start: 20080701
  4. ALCOHOL [Suspect]
  5. CLEXANE [Concomitant]
     Dosage: DAILY

REACTIONS (3)
  - DRUG DOSE OMISSION [None]
  - MULTIPLE DRUG OVERDOSE INTENTIONAL [None]
  - SUICIDE ATTEMPT [None]
